FAERS Safety Report 8102036 (Version 2)
Quarter: 2013Q1

REPORT INFORMATION
  Report Type: Spontaneous
  Country: JP (occurrence: JP)
  Receive Date: 20110823
  Receipt Date: 20130128
  Transmission Date: 20140127
  Serious: Yes (Death, Hospitalization, Other)
  Sender: FDA-Public Use
  Company Number: JP-BAYER-2011-052852

PATIENT
  Age: 76 Year
  Sex: Male
  Weight: 55 kg

DRUGS (8)
  1. NEXAVAR [Suspect]
     Indication: HEPATOCELLULAR CARCINOMA
     Dosage: 400 MG, BID
     Route: 048
     Dates: start: 20110511, end: 20110614
  2. NEXAVAR [Suspect]
     Indication: HEPATOCELLULAR CARCINOMA
     Dosage: DAILY DOSE 400 MG
     Route: 048
     Dates: start: 20110615, end: 20110628
  3. NEXAVAR [Suspect]
     Indication: HEPATOCELLULAR CARCINOMA
     Dosage: DAILY DOSE 200 MG
     Route: 048
     Dates: start: 20110629, end: 20110701
  4. UREPEARL [Concomitant]
     Indication: PROPHYLAXIS
     Dosage: UNK
     Route: 061
     Dates: start: 20110511
  5. OMEPRAL [Concomitant]
     Indication: DECREASED APPETITE
     Dosage: UNK
     Route: 065
     Dates: start: 20110525, end: 20110701
  6. LOXONIN [Concomitant]
     Indication: PAIN MANAGEMENT
     Dosage: UNK
     Route: 065
     Dates: start: 20110518, end: 20110701
  7. AMLODIN [Concomitant]
     Indication: HYPERTENSION
     Dosage: UNK
     Route: 048
     Dates: start: 20110608, end: 20110701
  8. BIOFERMIN [Concomitant]
     Indication: DIARRHOEA
     Dosage: UNK
     Route: 048
     Dates: start: 20110608, end: 20110701

REACTIONS (5)
  - Liver disorder [Recovering/Resolving]
  - Hepatocellular carcinoma [Fatal]
  - Palmar-plantar erythrodysaesthesia syndrome [Recovered/Resolved]
  - Diarrhoea [Recovered/Resolved]
  - Haemobilia [Recovered/Resolved]
